FAERS Safety Report 10315060 (Version 1)
Quarter: 2014Q3

REPORT INFORMATION
  Report Type: Spontaneous
  Country: US (occurrence: US)
  Receive Date: 20140719
  Receipt Date: 20140719
  Transmission Date: 20150326
  Serious: Yes (Other)
  Sender: FDA-Public Use
  Company Number: US-ABBVIE-14P-163-1260328-00

PATIENT
  Age: 52 Year
  Sex: Male
  Weight: 71.73 kg

DRUGS (10)
  1. VASOTEC [Concomitant]
     Active Substance: ENALAPRIL MALEATE
     Indication: RENAL DISORDER
  2. ZYRTEC [Concomitant]
     Active Substance: CETIRIZINE HYDROCHLORIDE
     Indication: SEASONAL ALLERGY
  3. VASOTEC [Concomitant]
     Active Substance: ENALAPRIL MALEATE
     Indication: PROPHYLAXIS
  4. ASPIRIN. [Concomitant]
     Active Substance: ASPIRIN
     Indication: PRODUCT USED FOR UNKNOWN INDICATION
  5. SINGULAIR [Concomitant]
     Active Substance: MONTELUKAST SODIUM
     Indication: SEASONAL ALLERGY
  6. OMNARIS [Concomitant]
     Active Substance: CICLESONIDE
     Indication: SEASONAL ALLERGY
  7. INSULIN [Concomitant]
     Active Substance: INSULIN NOS
     Indication: TYPE 1 DIABETES MELLITUS
  8. SIMCOR [Suspect]
     Active Substance: NIACIN\SIMVASTATIN
     Indication: HIGH DENSITY LIPOPROTEIN DECREASED
  9. VITAMIN D [Concomitant]
     Active Substance: CHOLECALCIFEROL
     Indication: PRODUCT USED FOR UNKNOWN INDICATION
  10. SIMCOR [Suspect]
     Active Substance: NIACIN\SIMVASTATIN
     Indication: LOW DENSITY LIPOPROTEIN INCREASED
     Dosage: 500/20 MILLIGRAMS
     Route: 048
     Dates: start: 2009, end: 20140710

REACTIONS (7)
  - Weight increased [Recovering/Resolving]
  - Hepatitis [Not Recovered/Not Resolved]
  - Abdominal distension [Recovered/Resolved]
  - Pleural effusion [Not Recovered/Not Resolved]
  - Swelling [Recovering/Resolving]
  - Abdominal pain [Recovered/Resolved]
  - Hepatic enzyme increased [Unknown]

NARRATIVE: CASE EVENT DATE: 201407
